FAERS Safety Report 4593262-1 (Version None)
Quarter: 2005Q1

REPORT INFORMATION
  Report Type: 
  Country: None (occurrence: None)
  Receive Date: 20050224
  Receipt Date: 20040325
  Transmission Date: 20050727
  Serious: No
  Sender: FDA-Public Use
  Company Number: US-BRISTOL-MYERS SQUIBB COMPANY-12548186

PATIENT
  Sex: Female
  Weight: 73 kg

DRUGS (1)
  1. EXCEDRIN (MIGRAINE) [Suspect]
     Indication: MIGRAINE
     Route: 048
     Dates: start: 20040324, end: 20040324

REACTIONS (3)
  - ABDOMINAL PAIN UPPER [None]
  - HEART RATE INCREASED [None]
  - INSOMNIA [None]
